FAERS Safety Report 8827759 (Version 2)
Quarter: 2014Q3

REPORT INFORMATION
  Report Type: Report from Study
  Country: US (occurrence: US)
  Receive Date: 20121005
  Receipt Date: 20140912
  Transmission Date: 20150326
  Serious: Yes (Hospitalization, Other)
  Sender: FDA-Public Use
  Company Number: US-ROCHE-1134750

PATIENT
  Sex: Male

DRUGS (20)
  1. CIPRO [Concomitant]
     Active Substance: CIPROFLOXACIN HYDROCHLORIDE
     Dosage: EVERY 12 HR FOR SEVEN DAY
     Route: 065
  2. ETOPOSIDE. [Concomitant]
     Active Substance: ETOPOSIDE
  3. AUGMENTIN [Concomitant]
     Active Substance: AMOXICILLIN\CLAVULANATE POTASSIUM
     Route: 065
  4. BIAXIN [Concomitant]
     Active Substance: CLARITHROMYCIN
  5. LIDOCAINE. [Concomitant]
     Active Substance: LIDOCAINE
  6. FLUDARABINE [Concomitant]
     Active Substance: FLUDARABINE PHOSPHATE
  7. HYDROXYDAUNORUBICIN [Concomitant]
     Active Substance: DOXORUBICIN
  8. HYTRIN [Concomitant]
     Active Substance: TERAZOSIN HYDROCHLORIDE
  9. IFOSFAMIDE. [Concomitant]
     Active Substance: IFOSFAMIDE
  10. PREDNISONE. [Concomitant]
     Active Substance: PREDNISONE
  11. IFEX [Concomitant]
     Active Substance: IFOSFAMIDE
  12. RITUXAN [Suspect]
     Active Substance: RITUXIMAB
     Indication: CHRONIC LYMPHOCYTIC LEUKAEMIA
     Dosage: VIAL SIZE: 100 MG
     Route: 042
     Dates: start: 20000509
  13. DECADRON [Concomitant]
     Active Substance: DEXAMETHASONE
  14. ONCOVIN [Concomitant]
     Active Substance: VINCRISTINE SULFATE
  15. GUIATUSS [Concomitant]
     Active Substance: GUAIFENESIN
  16. LOMOTIL (UNITED STATES) [Concomitant]
  17. ZOVIRAX [Concomitant]
     Active Substance: ACYCLOVIR
  18. MESNA. [Concomitant]
     Active Substance: MESNA
  19. CYTOXAN [Concomitant]
     Active Substance: CYCLOPHOSPHAMIDE
  20. CYCLOPHOSPHAMIDE. [Concomitant]
     Active Substance: CYCLOPHOSPHAMIDE

REACTIONS (7)
  - Lymphadenopathy [Unknown]
  - Herpes simplex [Unknown]
  - Cough [Unknown]
  - VIIth nerve paralysis [Unknown]
  - Tongue ulceration [Unknown]
  - Clostridium difficile infection [Unknown]
  - Cheilitis [Unknown]
